FAERS Safety Report 7339923-2 (Version None)
Quarter: 2011Q1

REPORT INFORMATION
  Report Type: 
  Country: None (occurrence: None)
  Receive Date: 20110228
  Receipt Date: 20110215
  Transmission Date: 20110831
  Serious: Yes (Hospitalization)
  Sender: FDA-Public Use
  Company Number: 017775

PATIENT
  Sex: Female
  Weight: 95 kg

DRUGS (18)
  1. LACOSAMIDE [Suspect]
     Indication: DIABETIC NEUROPATHY
     Dosage: 300 MG BID ORAL
     Route: 048
     Dates: start: 20100624, end: 20100823
  2. SIMVASTATIN [Concomitant]
  3. LACOSAMIDE [Suspect]
  4. LEVOTHYROXINE SODIUM [Concomitant]
  5. LACOSAMIDE [Suspect]
  6. LACOSAMIDE [Suspect]
  7. LACOSAMIDE [Suspect]
  8. LACOSAMIDE [Suspect]
  9. LACOSAMIDE [Suspect]
  10. BLOPRESS PLUS [Concomitant]
  11. HYDROCHLOROTHIAZIDE [Concomitant]
  12. LACOSAMIDE [Suspect]
  13. LACOSAMIDE [Suspect]
  14. ASPIRIN [Concomitant]
  15. LACOSAMIDE [Suspect]
  16. LACOSAMIDE [Suspect]
  17. METFORMIN [Concomitant]
  18. CLOPIDOGREL [Concomitant]

REACTIONS (4)
  - DYSPHAGIA [None]
  - DRY MOUTH [None]
  - HYPOGEUSIA [None]
  - OROPHARYNGEAL CANCER STAGE UNSPECIFIED [None]
